FAERS Safety Report 5819383-0 (Version None)
Quarter: 2008Q3

REPORT INFORMATION
  Report Type: 
  Country: None (occurrence: None)
  Receive Date: 20080723
  Receipt Date: 20080714
  Transmission Date: 20090109
  Serious: Yes (Disabling)
  Sender: FDA-Public Use
  Company Number: BE-ASTRAZENECA-2008AC01759

PATIENT
  Sex: Female

DRUGS (3)
  1. SEROQUEL [Suspect]
     Route: 048
     Dates: start: 20050201, end: 20080713
  2. TRAZOLAN [Concomitant]
  3. MANIPREX [Concomitant]

REACTIONS (2)
  - EYE INFLAMMATION [None]
  - GAIT DISTURBANCE [None]
